FAERS Safety Report 19380233 (Version 3)
Quarter: 2023Q2

REPORT INFORMATION
  Report Type: Spontaneous
  Country: US (occurrence: US)
  Receive Date: 20210607
  Receipt Date: 20230601
  Transmission Date: 20230721
  Serious: No
  Sender: FDA-Public Use
  Company Number: US-UCBSA-2020044344

PATIENT
  Age: 50 Year
  Sex: Female

DRUGS (1)
  1. CIMZIA [Suspect]
     Active Substance: CERTOLIZUMAB PEGOL
     Indication: Psoriatic arthropathy
     Dosage: 400 MILLIGRAM, EV 4 WEEKS
     Route: 058
     Dates: start: 20200206, end: 2020

REACTIONS (2)
  - Malaise [Unknown]
  - Psoriasis [Unknown]

NARRATIVE: CASE EVENT DATE: 20210201
